FAERS Safety Report 24156560 (Version 2)
Quarter: 2025Q1

REPORT INFORMATION
  Report Type: Report from Study
  Country: US (occurrence: US)
  Receive Date: 20240731
  Receipt Date: 20250319
  Transmission Date: 20250409
  Serious: No
  Sender: UCB
  Company Number: US-UCBSA-2024033936

PATIENT
  Sex: Female

DRUGS (1)
  1. ROTIGOTINE [Suspect]
     Active Substance: ROTIGOTINE
     Indication: Restless legs syndrome
     Dosage: 6 MILLIGRAM, ONCE DAILY (QD)
     Route: 062

REACTIONS (5)
  - Restless legs syndrome [Not Recovered/Not Resolved]
  - Dyspnoea [Not Recovered/Not Resolved]
  - Toothache [Not Recovered/Not Resolved]
  - Product adhesion issue [Unknown]
  - Overdose [Unknown]
